FAERS Safety Report 8727757 (Version 2)
Quarter: 2012Q4

REPORT INFORMATION
  Report Type: Report from Study
  Country: DE (occurrence: DE)
  Receive Date: 20120816
  Receipt Date: 20121206
  Transmission Date: 20130627
  Serious: Yes (Death, Hospitalization)
  Sender: FDA-Public Use
  Company Number: DE-GILEAD-2012-0059490

PATIENT
  Age: 73 Year
  Sex: Male

DRUGS (3)
  1. AMBRISENTAN [Suspect]
     Indication: PULMONARY ARTERIAL HYPERTENSION
     Dosage: 10 mg, QD
     Route: 048
     Dates: start: 20100916
  2. AMBRISENTAN [Suspect]
     Dosage: 5 mg, QD
     Route: 048
     Dates: start: 20100515
  3. SPIRONOLACTONE [Concomitant]
     Route: 048

REACTIONS (4)
  - Cardiac failure [Not Recovered/Not Resolved]
  - Chronic obstructive pulmonary disease [Not Recovered/Not Resolved]
  - Renal failure acute [Fatal]
  - Atrial fibrillation [Recovered/Resolved]
